FAERS Safety Report 18372680 (Version 1)
Quarter: 2020Q4

REPORT INFORMATION
  Report Type: Spontaneous
  Country: US (occurrence: US)
  Receive Date: 20201012
  Receipt Date: 20201012
  Transmission Date: 20210114
  Serious: Yes (Disabling, Other)
  Sender: FDA-Public Use
  Company Number: US-PURDUE-USA-2020-0168663

PATIENT
  Sex: Male

DRUGS (7)
  1. OXYCODONE/ ACETAMINOPHEN TABLETS [Suspect]
     Active Substance: ACETAMINOPHEN\OXYCODONE HYDROCHLORIDE
     Indication: PRODUCT USED FOR UNKNOWN INDICATION
     Dosage: 5-325 MG
     Route: 048
  2. BACLOFEN. [Concomitant]
     Active Substance: BACLOFEN
     Indication: PRODUCT USED FOR UNKNOWN INDICATION
     Dosage: 10 MG, UNK
     Route: 065
  3. PERCOCET                           /00446701/ [Suspect]
     Active Substance: ACETAMINOPHEN\OXYCODONE HYDROCHLORIDE\OXYCODONE TEREPHTHALATE
     Indication: PRODUCT USED FOR UNKNOWN INDICATION
     Dosage: 7.5-325 MG
     Route: 065
  4. TRAMADOL HCL [Suspect]
     Active Substance: TRAMADOL HYDROCHLORIDE
     Indication: PRODUCT USED FOR UNKNOWN INDICATION
     Dosage: 50 MG, UNK
     Route: 065
  5. DILAUDID [Suspect]
     Active Substance: HYDROMORPHONE HYDROCHLORIDE
     Indication: PRODUCT USED FOR UNKNOWN INDICATION
     Dosage: UNK
     Route: 048
  6. OXYCONTIN [Suspect]
     Active Substance: OXYCODONE HYDROCHLORIDE
     Indication: PRODUCT USED FOR UNKNOWN INDICATION
     Dosage: UNK
     Route: 048
  7. GABAPENTIN. [Concomitant]
     Active Substance: GABAPENTIN
     Indication: PRODUCT USED FOR UNKNOWN INDICATION
     Dosage: 300 MG, UNK
     Route: 065

REACTIONS (50)
  - Mental impairment [Unknown]
  - Atrial fibrillation [Unknown]
  - General physical health deterioration [Unknown]
  - Sleep apnoea syndrome [Unknown]
  - Feeling abnormal [Unknown]
  - Dizziness [Unknown]
  - Snoring [Unknown]
  - Arthralgia [Unknown]
  - Coagulation test abnormal [Unknown]
  - Asthenia [Unknown]
  - Insomnia [Unknown]
  - Hyperuricaemia [Unknown]
  - Pharyngitis [Unknown]
  - Neuropathic arthropathy [Unknown]
  - Sinus node dysfunction [Unknown]
  - Amnesia [Unknown]
  - Affect lability [Unknown]
  - Somnolence [Unknown]
  - Overdose [Unknown]
  - Drug dependence [Unknown]
  - Mental fatigue [Unknown]
  - Depression [Unknown]
  - Gait disturbance [Unknown]
  - Obesity [Unknown]
  - Intervertebral disc degeneration [Unknown]
  - Type 2 diabetes mellitus [Unknown]
  - Disturbance in attention [Unknown]
  - Chronic obstructive pulmonary disease [Unknown]
  - Mood swings [Unknown]
  - Headache [Unknown]
  - Chest pain [Unknown]
  - Libido decreased [Unknown]
  - Homocystinaemia [Unknown]
  - Viral infection [Unknown]
  - Apathy [Unknown]
  - Pain [Unknown]
  - Back pain [Unknown]
  - Fear of disease [Unknown]
  - Anxiety [Unknown]
  - Major depression [Unknown]
  - Chronic fatigue syndrome [Unknown]
  - Hyperlipidaemia [Unknown]
  - Coronary artery disease [Unknown]
  - Myalgia [Unknown]
  - Erectile dysfunction [Unknown]
  - Disability [Unknown]
  - Depressed level of consciousness [Unknown]
  - Muscular weakness [Unknown]
  - Pain in extremity [Unknown]
  - Periodontitis [Unknown]
